FAERS Safety Report 12869221 (Version 1)
Quarter: 2016Q4

REPORT INFORMATION
  Report Type: Spontaneous
  Country: US (occurrence: US)
  Receive Date: 20161021
  Receipt Date: 20161021
  Transmission Date: 20170207
  Serious: Yes (Other)
  Sender: FDA-Public Use
  Company Number: US-TEVA-704697USA

PATIENT
  Age: 10 Year
  Sex: Male

DRUGS (5)
  1. TOPOTECAN [Suspect]
     Active Substance: TOPOTECAN HYDROCHLORIDE
     Dates: start: 20160420
  2. CRIZOTINIB [Suspect]
     Active Substance: CRIZOTINIB
     Route: 065
     Dates: start: 20160420
  3. CYCLOPHOSPHAMIDE. [Suspect]
     Active Substance: CYCLOPHOSPHAMIDE
     Route: 065
     Dates: start: 20160420
  4. QUILLIVANT XR [Concomitant]
     Active Substance: METHYLPHENIDATE HYDROCHLORIDE
     Indication: ATTENTION DEFICIT/HYPERACTIVITY DISORDER
  5. HYDROXYZINE [Concomitant]
     Active Substance: HYDROXYZINE\HYDROXYZINE HYDROCHLORIDE
     Indication: SEASONAL ALLERGY

REACTIONS (28)
  - Aspiration [Unknown]
  - Selective eating disorder [Unknown]
  - Ear pain [Unknown]
  - Mucosal inflammation [Unknown]
  - Body temperature decreased [Unknown]
  - Tongue coated [Unknown]
  - Erythema [Unknown]
  - Pharyngeal oedema [Unknown]
  - Obstructive airways disorder [Unknown]
  - Decreased appetite [Recovering/Resolving]
  - Sleep apnoea syndrome [Unknown]
  - Diaphragm muscle weakness [Unknown]
  - Epiglottic oedema [Unknown]
  - Increased upper airway secretion [Recovering/Resolving]
  - Cough [Recovering/Resolving]
  - Diaphragmatic disorder [Unknown]
  - Oral pain [Recovered/Resolved]
  - Immunodeficiency [Unknown]
  - Diarrhoea [Recovered/Resolved]
  - Pneumonitis [Unknown]
  - Incontinence [Unknown]
  - Application site pruritus [Unknown]
  - Neutropenia [Recovering/Resolving]
  - Hypoxia [Unknown]
  - Sepsis [Unknown]
  - Laryngeal oedema [Unknown]
  - Skin toxicity [Recovered/Resolved]
  - Skin candida [Unknown]

NARRATIVE: CASE EVENT DATE: 201609
